FAERS Safety Report 20501589 (Version 1)
Quarter: 2022Q1

REPORT INFORMATION
  Report Type: Report from Study
  Country: US (occurrence: US)
  Receive Date: 20220222
  Receipt Date: 20220222
  Transmission Date: 20220423
  Serious: Yes (Death)
  Sender: FDA-Public Use
  Company Number: US-ABBVIE-21K-163-3852679-00

PATIENT
  Age: 68 Year
  Sex: Female

DRUGS (4)
  1. VENCLEXTA [Suspect]
     Active Substance: VENETOCLAX
     Indication: Neoplasm malignant
     Dosage: WEEK 1,TAKE WITH A MEAL AND A FULL GLASS OF WATER SWALLOW TABLETS WHOLE
     Route: 048
     Dates: start: 20210317
  2. VENCLEXTA [Suspect]
     Active Substance: VENETOCLAX
     Indication: Acute myeloid leukaemia
     Dosage: WEEK 2,TAKE WITH A MEAL AND A FULL GLASS OF WATER SWALLOW TABLETS WHOLE
     Route: 048
  3. VENCLEXTA [Suspect]
     Active Substance: VENETOCLAX
     Indication: Pancytopenia
     Dosage: WEEK 3, TAKE WITH A MEAL AND A FULL GLASS OF WATER SWALLOW TABLETS WHOLE
     Route: 048
  4. VENCLEXTA [Suspect]
     Active Substance: VENETOCLAX
     Dosage: WEEK 4, TAKE WITH A MEAL AND A FULL GLASS OF WATER SWALLOW TABLETS WHOLE
     Route: 048

REACTIONS (3)
  - Death [Fatal]
  - Oral candidiasis [Unknown]
  - Off label use [Unknown]

NARRATIVE: CASE EVENT DATE: 20210317
